FAERS Safety Report 22365788 (Version 1)
Quarter: 2023Q2

REPORT INFORMATION
  Report Type: Spontaneous
  Country: US (occurrence: US)
  Receive Date: 20230525
  Receipt Date: 20230525
  Transmission Date: 20230721
  Serious: No
  Sender: FDA-Public Use
  Company Number: US-ELI_LILLY_AND_COMPANY-US202305012994

PATIENT

DRUGS (1)
  1. MOUNJARO [Suspect]
     Active Substance: TIRZEPATIDE
     Indication: Blood glucose increased
     Dosage: UNK, UNKNOWN
     Route: 065
     Dates: start: 202303

REACTIONS (4)
  - Drug ineffective [Unknown]
  - Blood glucose increased [Unknown]
  - Vomiting [Unknown]
  - Abdominal discomfort [Unknown]
